FAERS Safety Report 4385031-2 (Version None)
Quarter: 2004Q2

REPORT INFORMATION
  Report Type: 
  Country: None (occurrence: None)
  Receive Date: 20040625
  Receipt Date: 20040318
  Transmission Date: 20050107
  Serious: Yes (Life-Threatening, Hospitalization)
  Sender: FDA-Public Use
  Company Number: FR-GLAXOSMITHKLINE-B0327272A

PATIENT
  Age: 80 Year
  Sex: Female
  Weight: 70 kg

DRUGS (5)
  1. LAMICTAL [Suspect]
     Indication: EPILEPSY
     Route: 048
     Dates: start: 20031211, end: 20040227
  2. NEURONTIN [Concomitant]
     Indication: EPILEPSY
     Route: 048
  3. PREVISCAN [Concomitant]
     Dosage: 15MG PER DAY
     Route: 048
  4. FLECAINE [Concomitant]
     Dosage: 150MG PER DAY
     Route: 048
  5. LEVOTHYROXINE SODIUM [Concomitant]
     Dosage: 37.5MCG PER DAY
     Route: 048

REACTIONS (6)
  - AGRANULOCYTOSIS [None]
  - ANAEMIA [None]
  - LEUKOPENIA [None]
  - LUNG DISORDER [None]
  - PYREXIA [None]
  - SEPTIC SHOCK [None]
